FAERS Safety Report 10589811 (Version 2)
Quarter: 2014Q4

REPORT INFORMATION
  Report Type: Spontaneous
  Country: RO (occurrence: RO)
  Receive Date: 20141118
  Receipt Date: 20141230
  Transmission Date: 20150529
  Serious: Yes (Hospitalization, Other)
  Sender: FDA-Public Use
  Company Number: RO-NOVOPROD-428632

PATIENT
  Age: 65 Year
  Sex: Male
  Weight: 132 kg

DRUGS (14)
  1. VERAPAMIL [Concomitant]
     Active Substance: VERAPAMIL HYDROCHLORIDE
     Dosage: 1/2-0-0/DAY
     Route: 065
  2. PROPAFENONE. [Concomitant]
     Active Substance: PROPAFENONE
     Dosage: 1-1-1/DAY
     Route: 065
  3. PRADAXA [Concomitant]
     Active Substance: DABIGATRAN ETEXILATE MESYLATE
     Dosage: 1-0-1/DAY
     Route: 065
  4. FENOFIBRATE. [Concomitant]
     Active Substance: FENOFIBRATE
     Dosage: 0-0-1/DAY
     Route: 065
  5. DUOTRAV [Concomitant]
     Active Substance: TIMOLOL\TRAVOPROST
     Dosage: 0-0-2 DROPS/DAY
     Route: 065
  6. NOVORAPID [Suspect]
     Active Substance: INSULIN ASPART
     Indication: TYPE 2 DIABETES MELLITUS
     Dosage: 68 U, QD
     Route: 058
     Dates: start: 20140722
  7. NOVORAPID [Suspect]
     Active Substance: INSULIN ASPART
     Dosage: 750 U
     Route: 058
  8. LANTUS [Suspect]
     Active Substance: INSULIN GLARGINE
     Dosage: 280 U
     Route: 058
  9. RAMIPRIL. [Concomitant]
     Active Substance: RAMIPRIL
     Dosage: 1-0-0/DAY
     Route: 065
  10. INDAPAMIDE. [Concomitant]
     Active Substance: INDAPAMIDE
     Dosage: 1-0-0/DAY
     Route: 065
  11. TAMSULOSIN [Concomitant]
     Active Substance: TAMSULOSIN
     Dosage: 0-0-1/DAY
     Route: 065
  12. LANTUS [Suspect]
     Active Substance: INSULIN GLARGINE
     Indication: TYPE 2 DIABETES MELLITUS
     Dosage: 70 U, QD
     Route: 058
  13. SERETAIDE DISKUS [Concomitant]
     Dosage: 2 PUFF, QD (1-0-1 PUFF/DAY)
     Route: 065
  14. RILMENIDINE [Concomitant]
     Active Substance: RILMENIDINE
     Dosage: 0-0-1/DAY
     Route: 065

REACTIONS (5)
  - Suicide attempt [Unknown]
  - Intentional overdose [Unknown]
  - Injection site bruising [Unknown]
  - Hypoglycaemia [Recovered/Resolved]
  - Wrong technique in drug usage process [Unknown]

NARRATIVE: CASE EVENT DATE: 20140722
